FAERS Safety Report 9307189 (Version 2)
Quarter: 2014Q1

REPORT INFORMATION
  Report Type: Spontaneous
  Country: IT (occurrence: IT)
  Receive Date: 20130524
  Receipt Date: 20140328
  Transmission Date: 20141002
  Serious: Yes (Hospitalization)
  Sender: FDA-Public Use
  Company Number: IT-ROCHE-1228253

PATIENT
  Age: 67 Year
  Sex: Male

DRUGS (3)
  1. XELODA [Suspect]
     Indication: SMALL INTESTINE CARCINOMA METASTATIC
     Route: 048
     Dates: start: 20120808, end: 20120809
  2. OXALIPLATINO KABI [Suspect]
     Indication: SMALL INTESTINE CARCINOMA METASTATIC
     Route: 042
     Dates: start: 20120808, end: 20120808
  3. OMNIC [Concomitant]
     Indication: BENIGN PROSTATIC HYPERPLASIA
     Route: 048

REACTIONS (1)
  - Intestinal infarction [Recovered/Resolved]
